FAERS Safety Report 20961807 (Version 1)
Quarter: 2022Q2

REPORT INFORMATION
  Report Type: Spontaneous
  Country: US (occurrence: US)
  Receive Date: 20220615
  Receipt Date: 20220615
  Transmission Date: 20220721
  Serious: No
  Sender: FDA-Public Use
  Company Number: US-PFIZER INC-202101292322

PATIENT
  Age: 70 Year
  Sex: Male

DRUGS (1)
  1. XELJANZ XR [Suspect]
     Active Substance: TOFACITINIB CITRATE
     Indication: Ankylosing spondylitis
     Dosage: 11 MG, DAILY
     Route: 048

REACTIONS (6)
  - Off label use [Unknown]
  - Pain in extremity [Unknown]
  - Arthralgia [Unknown]
  - Discomfort [Unknown]
  - Hypokinesia [Unknown]
  - Gait disturbance [Unknown]
